FAERS Safety Report 24250208 (Version 1)
Quarter: 2024Q3

REPORT INFORMATION
  Report Type: Spontaneous
  Country: US (occurrence: None)
  Receive Date: 20240824
  Receipt Date: 20240824
  Transmission Date: 20241017
  Serious: No
  Sender: Public
  Company Number: None

PATIENT
  Age: 51 Year
  Sex: Female

DRUGS (12)
  1. DULERA [Suspect]
     Active Substance: FORMOTEROL FUMARATE DIHYDRATE\MOMETASONE FUROATE
     Indication: Asthma prophylaxis
     Dosage: TWICE A DAY RESPIRATORY (INHALATION)
     Route: 055
     Dates: start: 20240823, end: 20240824
  2. TRAMADOL [Concomitant]
  3. GABAPENTIN [Concomitant]
  4. LISINOPRIL [Concomitant]
  5. AMLODIPINE [Concomitant]
  6. CITALOPRAM [Concomitant]
  7. METFORMIN [Concomitant]
  8. flutiasone [Concomitant]
  9. Claritin [Concomitant]
  10. FAMOTIDINE [Concomitant]
  11. TYLENOL [Concomitant]
  12. IBUPROFEN [Concomitant]

REACTIONS (14)
  - Product substitution issue [None]
  - Headache [None]
  - Paranasal sinus discomfort [None]
  - Thirst [None]
  - Feeling abnormal [None]
  - Sinus pain [None]
  - Wheezing [None]
  - Dizziness [None]
  - Paraesthesia [None]
  - Paraesthesia [None]
  - Vision blurred [None]
  - Palpitations [None]
  - Tremor [None]
  - Nausea [None]

NARRATIVE: CASE EVENT DATE: 20240824
